FAERS Safety Report 10160816 (Version 1)
Quarter: 2014Q2

REPORT INFORMATION
  Report Type: Spontaneous
  Country: US (occurrence: US)
  Receive Date: 20140508
  Receipt Date: 20140508
  Transmission Date: 20141212
  Serious: Yes (Other)
  Sender: FDA-Public Use
  Company Number: US-ACTAVIS-2014-09437

PATIENT
  Age: 14 Year
  Sex: Male

DRUGS (2)
  1. CYCLOSPORINE (WATSON LABORATORIES) [Suspect]
     Indication: DERMATITIS ATOPIC
     Dosage: 100 MG, BID (5 MG/KG DAILY)
     Route: 048
  2. ITRACONAZOLE (UNKNOWN) [Interacting]
     Indication: ANTIFUNGAL PROPHYLAXIS
     Dosage: 100 MG, DAILY
     Route: 048

REACTIONS (4)
  - Cognitive disorder [Recovered/Resolved]
  - Anxiety [Unknown]
  - Drug interaction [Recovered/Resolved]
  - Drug level increased [Recovered/Resolved]
